FAERS Safety Report 9185215 (Version 1)
Quarter: 2013Q1

REPORT INFORMATION
  Report Type: Report from Study
  Country: PT (occurrence: PT)
  Receive Date: 20130325
  Receipt Date: 20130325
  Transmission Date: 20140127
  Serious: Yes (Hospitalization)
  Sender: FDA-Public Use
  Company Number: PT-BIOGENIDEC-2013BI020252

PATIENT
  Age: 35 Year
  Sex: Female

DRUGS (4)
  1. TYSABRI [Suspect]
     Indication: MULTIPLE SCLEROSIS
     Route: 042
     Dates: start: 20081113
  2. ANTACIDS [Concomitant]
  3. ANTIDEPRESSANTS [Concomitant]
  4. PREDNISOLONE [Concomitant]
     Route: 048

REACTIONS (1)
  - Paraparesis [Recovered/Resolved]
